FAERS Safety Report 20861023 (Version 7)
Quarter: 2023Q2

REPORT INFORMATION
  Report Type: Report from Study
  Country: DE (occurrence: DE)
  Receive Date: 20220523
  Receipt Date: 20230411
  Transmission Date: 20230722
  Serious: Yes (Other)
  Sender: FDA-Public Use
  Company Number: DE-TAKEDA-2022TUS033127

PATIENT
  Sex: Female

DRUGS (4)
  1. HUMAN IMMUNOGLOBULIN G\HYALURONIDASE RECOMBINANT HUMAN [Suspect]
     Active Substance: HUMAN IMMUNOGLOBULIN G\HYALURONIDASE RECOMBINANT HUMAN
     Indication: Secondary immunodeficiency
     Dosage: 10 GRAM, 3/MONTH
     Route: 058
     Dates: start: 20190515
  2. HUMAN IMMUNOGLOBULIN G\HYALURONIDASE RECOMBINANT HUMAN [Suspect]
     Active Substance: HUMAN IMMUNOGLOBULIN G\HYALURONIDASE RECOMBINANT HUMAN
     Dosage: 10 GRAM
     Route: 058
     Dates: start: 20190515
  3. HUMAN IMMUNOGLOBULIN G\HYALURONIDASE RECOMBINANT HUMAN [Suspect]
     Active Substance: HUMAN IMMUNOGLOBULIN G\HYALURONIDASE RECOMBINANT HUMAN
     Dosage: 10 GRAM, 3/MONTH
     Route: 058
     Dates: start: 20191204
  4. HUMAN IMMUNOGLOBULIN G\HYALURONIDASE RECOMBINANT HUMAN [Suspect]
     Active Substance: HUMAN IMMUNOGLOBULIN G\HYALURONIDASE RECOMBINANT HUMAN
     Dosage: 10 GRAM
     Route: 058
     Dates: start: 20191204

REACTIONS (4)
  - Hodgkin^s disease recurrent [Unknown]
  - Serum ferritin increased [Not Recovered/Not Resolved]
  - Neoplasm recurrence [Unknown]
  - Infection [Not Recovered/Not Resolved]
